FAERS Safety Report 16383513 (Version 1)
Quarter: 2019Q2

REPORT INFORMATION
  Report Type: Spontaneous
  Country: US (occurrence: US)
  Receive Date: 20190426
  Receipt Date: 20190426
  Transmission Date: 20190711
  Serious: Yes (Other)
  Sender: FDA-Public Use
  Company Number: None

PATIENT
  Age: 51 Year
  Sex: Female
  Weight: 52.16 kg

DRUGS (1)
  1. ESTRADIOL. [Suspect]
     Active Substance: ESTRADIOL
     Indication: HYSTERECTOMY
     Dosage: ?          OTHER ROUTE:PATCH?
     Route: 062
     Dates: start: 201304, end: 201308

REACTIONS (3)
  - Product substitution issue [None]
  - Rash [None]
  - Product adhesion issue [None]

NARRATIVE: CASE EVENT DATE: 20130908
